FAERS Safety Report 5740390-0 (Version None)
Quarter: 2008Q2

REPORT INFORMATION
  Report Type: 
  Country: None (occurrence: None)
  Receive Date: 20080516
  Receipt Date: 20080514
  Transmission Date: 20081010
  Serious: Yes (Hospitalization)
  Sender: FDA-Public Use
  Company Number: FR-BRISTOL-MYERS SQUIBB COMPANY-14161699

PATIENT
  Age: 75 Year
  Sex: Female

DRUGS (17)
  1. ABATACEPT [Suspect]
     Indication: RHEUMATOID ARTHRITIS
     Route: 042
     Dates: start: 20030429, end: 20080423
  2. TAHOR [Concomitant]
     Dosage: 1 DOSAGE FORM = 1/2 (UNITS NOT SPECIFIED) PER DAY
     Dates: start: 20070201
  3. TEMERIT [Concomitant]
     Dates: start: 20060616
  4. ASPIRIN [Concomitant]
     Dates: start: 20070719
  5. CORTANCYL [Concomitant]
     Dates: start: 20031016
  6. TANAKAN [Concomitant]
     Dosage: 1 DOSAGE FORM = 3 TABLETS
  7. FOLIC ACID [Concomitant]
     Dosage: 1 DOSAGE FORM = 3 TABLET
  8. OROCAL D3 [Concomitant]
     Dosage: 1 DOSAGE FORM = 2 TABLETS
     Dates: start: 20010101
  9. DAFALGAN [Concomitant]
  10. XANAX [Concomitant]
     Dosage: 1 DOSAGE FORM = 2 TABLET
  11. MAGNE-B6 [Concomitant]
     Dosage: 1 DOSAGE FORM= 4 TABLET
     Dates: start: 20070401
  12. ALDACTONE [Concomitant]
     Dosage: 1 DOSAGE FORM = 4 TABLET
     Dates: start: 20070719
  13. ZOLTUM [Concomitant]
     Dates: start: 20000101
  14. TOCO [Concomitant]
     Dosage: 1 DOSAGE FORM = 4 TABLETS
  15. FOSAMAX [Concomitant]
     Dates: start: 20020101
  16. DIANTALVIC [Concomitant]
     Dosage: 1 DOSAGE FORM = 3 TABLET
     Dates: start: 20070101
  17. METOJECT [Concomitant]
     Dates: start: 20080101

REACTIONS (1)
  - HYPERTHERMIA [None]
